FAERS Safety Report 8211439-0 (Version None)
Quarter: 2012Q1

REPORT INFORMATION
  Report Type: 
  Country: None (occurrence: None)
  Receive Date: 20120229
  Receipt Date: 20110207
  Transmission Date: 20120608
  Serious: Yes (Other)
  Sender: FDA-Public Use
  Company Number: US-JNJFOC-20110107411

PATIENT
  Age: 8 Year
  Sex: Male
  Weight: 33.5662 kg

DRUGS (3)
  1. CHILDREN'S MOTRIN [Suspect]
     Indication: EAR INFECTION
     Dosage: 200 MG, 1 IN 1 TOTAL, ORAL
     Route: 048
     Dates: start: 20110124, end: 20110124
  2. CHILDREN'S TYLENOL LIQUID CHERRY (PARACETAMOL) [Concomitant]
  3. COLCHICINE (COLCHICINE) UNSPECIFIED [Concomitant]

REACTIONS (3)
  - PRODUCT QUALITY ISSUE [None]
  - HAEMATOCHEZIA [None]
  - DRUG INEFFECTIVE [None]
